FAERS Safety Report 6548885-7 (Version None)
Quarter: 2010Q1

REPORT INFORMATION
  Report Type: 
  Country: None (occurrence: None)
  Receive Date: 20100125
  Receipt Date: 20100116
  Transmission Date: 20100710
  Serious: Yes (Hospitalization)
  Sender: FDA-Public Use
  Company Number: US-BIOGENIDEC-2009BI018880

PATIENT
  Age: 60 Year
  Sex: Female

DRUGS (2)
  1. TYSABRI [Suspect]
     Indication: MULTIPLE SCLEROSIS
     Route: 042
     Dates: start: 20081021, end: 20090903
  2. TYSABRI [Suspect]
     Indication: CROHN'S DISEASE
     Route: 042
     Dates: start: 20081021, end: 20090903

REACTIONS (7)
  - CERVICAL SPINAL STENOSIS [None]
  - FALL [None]
  - HERPES ZOSTER [None]
  - INTERVERTEBRAL DISC PROTRUSION [None]
  - SPINAL COLUMN INJURY [None]
  - URINARY TRACT INFECTION [None]
  - VOMITING [None]
